FAERS Safety Report 10049711 (Version 2)
Quarter: 2014Q2

REPORT INFORMATION
  Report Type: Report from Study
  Country: ES (occurrence: ES)
  Receive Date: 20140401
  Receipt Date: 20140501
  Transmission Date: 20141212
  Serious: Yes (Hospitalization)
  Sender: FDA-Public Use
  Company Number: PHHY2014ES036208

PATIENT
  Age: 51 Year
  Sex: Female

DRUGS (3)
  1. OSLIF BREEZHALER [Suspect]
     Indication: ASTHMA
     Dosage: UNK
     Route: 055
     Dates: start: 20140217, end: 20140311
  2. OSLIF BREEZHALER [Suspect]
     Indication: OFF LABEL USE
  3. SINGULAIR [Concomitant]
     Dosage: 10 MG, UNK

REACTIONS (3)
  - Atrioventricular block [Recovered/Resolved]
  - Syncope [Unknown]
  - Chest pain [Unknown]
